FAERS Safety Report 24687060 (Version 1)
Quarter: 2024Q4

REPORT INFORMATION
  Report Type: Spontaneous
  Country: US (occurrence: US)
  Receive Date: 20241202
  Receipt Date: 20241202
  Transmission Date: 20250114
  Serious: No
  Sender: PFIZER
  Company Number: US-PFIZER INC-202400304641

PATIENT
  Age: 52 Year
  Sex: Male

DRUGS (1)
  1. TUKYSA [Suspect]
     Active Substance: TUCATINIB
     Dosage: TAKE 300MG BY MOUTH TWICE A DAY/TAKE 300MG BY MOUTH IN MORNING AND BED/TUKYSA 150MG; 2 TABLETS TWICE
     Route: 048

REACTIONS (2)
  - Off label use [Unknown]
  - Dysphagia [Unknown]
